FAERS Safety Report 6039274-2 (Version None)
Quarter: 2009Q1

REPORT INFORMATION
  Report Type: 
  Country: None (occurrence: None)
  Receive Date: 20090115
  Receipt Date: 20090108
  Transmission Date: 20090719
  Serious: Yes (Other)
  Sender: FDA-Public Use
  Company Number: PHEH2009US00569

PATIENT

DRUGS (5)
  1. TEKTURNA [Suspect]
  2. DIOVAN [Suspect]
     Dosage: 160 MG, QD
  3. DEPAKOTE [Suspect]
     Dosage: 500 MG, QD
  4. METFORMIN [Suspect]
  5. EFFEXOR [Suspect]

REACTIONS (1)
  - RENAL FAILURE [None]
